FAERS Safety Report 25510655 (Version 2)
Quarter: 2025Q3

REPORT INFORMATION
  Report Type: Spontaneous
  Country: US (occurrence: US)
  Receive Date: 20250703
  Receipt Date: 20250710
  Transmission Date: 20251021
  Serious: Yes (Other)
  Sender: ELI LILLY AND COMPANY
  Company Number: US-ELI_LILLY_AND_COMPANY-US202507002415

PATIENT
  Age: 74 Year
  Sex: Female

DRUGS (1)
  1. HUMULIN N [Suspect]
     Active Substance: INSULIN HUMAN
     Indication: Product used for unknown indication
     Route: 065

REACTIONS (2)
  - Pancreatitis [Unknown]
  - Drug ineffective [Unknown]
